FAERS Safety Report 13473486 (Version 2)
Quarter: 2018Q2

REPORT INFORMATION
  Report Type: Spontaneous
  Country: US (occurrence: US)
  Receive Date: 20170424
  Receipt Date: 20180418
  Transmission Date: 20180711
  Serious: Yes (Other)
  Sender: FDA-Public Use
  Company Number: US-ASTELLAS-2017US011042

PATIENT
  Age: 7 Decade
  Sex: Male

DRUGS (1)
  1. LEXISCAN [Suspect]
     Active Substance: REGADENOSON
     Indication: CARDIAC STRESS TEST
     Dosage: 0.4 MG, TOTAL DOSE OVER 10 SECS
     Route: 042
     Dates: start: 20170206, end: 20170206

REACTIONS (5)
  - Dyspnoea [Unknown]
  - Seizure [Unknown]
  - Hypokinesia [Unknown]
  - Dysstasia [Unknown]
  - Gait inability [Unknown]

NARRATIVE: CASE EVENT DATE: 20170206
